FAERS Safety Report 12074838 (Version 1)
Quarter: 2016Q1

REPORT INFORMATION
  Report Type: Spontaneous
  Country: RO (occurrence: RO)
  Receive Date: 20160212
  Receipt Date: 20160212
  Transmission Date: 20160526
  Serious: Yes (Hospitalization)
  Sender: FDA-Public Use
  Company Number: RO-SA-2016SA024197

PATIENT
  Age: 39 Year
  Sex: Female

DRUGS (2)
  1. FUROSEMIDE. [Suspect]
     Active Substance: FUROSEMIDE
     Indication: HYPERTENSION
     Route: 065
  2. FUROSEMIDE. [Suspect]
     Active Substance: FUROSEMIDE
     Indication: HYPERTENSION
     Route: 065

REACTIONS (7)
  - Drug abuse [Unknown]
  - Urine phosphorus decreased [Recovered/Resolved]
  - Osteopenia [Unknown]
  - Hyperparathyroidism secondary [Recovered/Resolved]
  - Nephrocalcinosis [Unknown]
  - Urine calcium decreased [Recovered/Resolved]
  - Osteomalacia [Unknown]
